FAERS Safety Report 4983225-6 (Version None)
Quarter: 2006Q2

REPORT INFORMATION
  Report Type: 
  Country: None (occurrence: None)
  Receive Date: 20060419
  Receipt Date: 20060407
  Transmission Date: 20061013
  Serious: Yes (Other)
  Sender: FDA-Public Use
  Company Number: 2006026744

PATIENT
  Age: 33 Year
  Sex: Female

DRUGS (3)
  1. DEPO-PROVERA SUSPENSION/INJ [Suspect]
     Indication: CONTRACEPTION
     Dosage: 150 MG (150 MG, IST INJECTION, EVERY 10 WEEKS), INTRAMUSCULAR, SEE IMAGE
     Route: 030
     Dates: start: 20020101, end: 20020101
  2. DEPO-PROVERA SUSPENSION/INJ [Suspect]
     Indication: CONTRACEPTION
     Dosage: 150 MG (150 MG, IST INJECTION, EVERY 10 WEEKS), INTRAMUSCULAR, SEE IMAGE
     Route: 030
     Dates: start: 20051125, end: 20051125
  3. DEPO-PROVERA SUSPENSION/INJ [Suspect]
     Indication: CONTRACEPTION
     Dosage: 150 MG (150 MG, IST INJECTION, EVERY 10 WEEKS), INTRAMUSCULAR, SEE IMAGE
     Route: 030
     Dates: start: 20060217, end: 20060217

REACTIONS (3)
  - CONFUSIONAL STATE [None]
  - CONVULSION [None]
  - LOSS OF CONSCIOUSNESS [None]
